FAERS Safety Report 13819100 (Version 1)
Quarter: 2017Q3

REPORT INFORMATION
  Report Type: Spontaneous
  Country: US (occurrence: US)
  Receive Date: 20170801
  Receipt Date: 20170801
  Transmission Date: 20171127
  Serious: Yes (Death, Other)
  Sender: FDA-Public Use
  Company Number: US-BIO-PHARM, INC -2023993

PATIENT
  Age: 49 Year
  Sex: Male

DRUGS (1)
  1. HCBT + HOMATROPINE METHYLBROMIDE SYRUP [Suspect]
     Active Substance: HOMATROPINE METHYLBROMIDE\HYDROCODONE BITARTRATE

REACTIONS (2)
  - Intentional overdose [None]
  - Cardiac arrest [Fatal]
